FAERS Safety Report 9400299 (Version 1)
Quarter: 2013Q3

REPORT INFORMATION
  Report Type: Report from Study
  Country: DE (occurrence: DE)
  Receive Date: 20130715
  Receipt Date: 20130715
  Transmission Date: 20140515
  Serious: Yes (Other)
  Sender: FDA-Public Use
  Company Number: DE-SANOFI-AVENTIS-2013SA061112

PATIENT
  Age: 58 Year
  Sex: Male
  Weight: 95 kg

DRUGS (6)
  1. MULTAQ [Suspect]
     Indication: ATRIAL FIBRILLATION
     Route: 048
     Dates: start: 20120612, end: 20130615
  2. BETA BLOCKING AGENTS [Concomitant]
     Dates: start: 201104
  3. VIT K ANTAGONISTS [Concomitant]
     Indication: ANTICOAGULANT THERAPY
     Dates: start: 201205
  4. METOPROLOL [Concomitant]
  5. TRIAMTERENE [Concomitant]
  6. ENALAPRIL [Concomitant]

REACTIONS (3)
  - Atrial fibrillation [Unknown]
  - Liver function test abnormal [Unknown]
  - Fatigue [Unknown]
